FAERS Safety Report 10064551 (Version 1)
Quarter: 2014Q2

REPORT INFORMATION
  Report Type: Spontaneous
  Country: DE (occurrence: None)
  Receive Date: 20140404
  Receipt Date: 20140404
  Transmission Date: 20141212
  Serious: Yes (Other)
  Sender: FDA-Public Use
  Company Number: DE-20140062

PATIENT
  Age: 45 Year
  Sex: Female

DRUGS (2)
  1. GADOTERIC ACID [Suspect]
     Indication: NUCLEAR MAGNETIC RESONANCE IMAGING BRAIN
     Dosage: 22 ML, 1 IN 1 D
     Route: 042
     Dates: start: 20140322, end: 20140322
  2. GADOTERIC ACID [Suspect]
     Indication: NUCLEAR MAGNETIC RESONANCE IMAGING BRAIN
     Dosage: 22 ML, 1 IN 1 D
     Route: 042
     Dates: start: 20140322, end: 20140322

REACTIONS (5)
  - Tachycardia [None]
  - Sense of oppression [None]
  - Cough [None]
  - Hypersensitivity [None]
  - Contrast media reaction [None]
